FAERS Safety Report 9779151 (Version 2)
Quarter: 2013Q4

REPORT INFORMATION
  Report Type: Report from Study
  Country: DE (occurrence: TR)
  Receive Date: 20131223
  Receipt Date: 20131230
  Transmission Date: 20140711
  Serious: Yes (Death)
  Sender: FDA-Public Use
  Company Number: DE-ACTELION-A-NJ2013-92786

PATIENT
  Age: 9 Month
  Sex: 0

DRUGS (1)
  1. VENTAVIS [Suspect]
     Indication: PULMONARY HYPERTENSION
     Dosage: UNK
     Route: 055
     Dates: start: 20131012, end: 20131213

REACTIONS (3)
  - Cardiac disorder [Fatal]
  - Atrial septal defect [Fatal]
  - Off label use [Unknown]
